FAERS Safety Report 6557328-9 (Version None)
Quarter: 2010Q1

REPORT INFORMATION
  Report Type: 
  Country: None (occurrence: None)
  Receive Date: 20100128
  Receipt Date: 20100128
  Transmission Date: 20100710
  Serious: Yes (Other)
  Sender: FDA-Public Use
  Company Number: None

PATIENT
  Age: 26 Year
  Sex: Female
  Weight: 95.709 kg

DRUGS (1)
  1. TYLENOL 8 HR 650 MG TYLENOL - MCNEIL-PPC, INC. [Suspect]
     Indication: ARTHRALGIA
     Dosage: 2 CAPLETS TWICE A DAY PO
     Route: 048
     Dates: start: 20100124, end: 20100127

REACTIONS (2)
  - DIARRHOEA [None]
  - INFLUENZA LIKE ILLNESS [None]
